FAERS Safety Report 5057749-X (Version None)
Quarter: 2006Q3

REPORT INFORMATION
  Report Type: 
  Country: None (occurrence: None)
  Receive Date: 20060721
  Receipt Date: 20060202
  Transmission Date: 20061208
  Serious: No
  Sender: FDA-Public Use
  Company Number: US-GLAXOSMITHKLINE-A0592147A

PATIENT
  Sex: Male

DRUGS (8)
  1. AVANDIA [Suspect]
     Dosage: 8MG PER DAY
     Route: 048
  2. TRICOR [Concomitant]
  3. LIPITOR [Concomitant]
  4. GLIMEPIRIDE [Concomitant]
  5. DIGOXIN [Concomitant]
  6. ENALAPRIL MALEATE [Concomitant]
  7. METOLAZONE [Concomitant]
  8. ENALAPRIL MALEATE [Concomitant]

REACTIONS (1)
  - BLOOD GLUCOSE INCREASED [None]
